FAERS Safety Report 5090928-4 (Version None)
Quarter: 2006Q3

REPORT INFORMATION
  Report Type: 
  Country: None (occurrence: None)
  Receive Date: 20060823
  Receipt Date: 20060807
  Transmission Date: 20061208
  Serious: Yes (Hospitalization, Other)
  Sender: FDA-Public Use
  Company Number: US200608002085

PATIENT
  Sex: Female
  Weight: 49.9 kg

DRUGS (1)
  1. ZYPREXA [Suspect]
     Dosage: 25 MG
     Dates: start: 20010101

REACTIONS (6)
  - BILIARY TRACT DISORDER [None]
  - DIABETES MELLITUS [None]
  - MENTAL DISORDER [None]
  - METABOLIC DISORDER [None]
  - PANCREATITIS [None]
  - PRESCRIBED OVERDOSE [None]
